FAERS Safety Report 4766990-2 (Version None)
Quarter: 2005Q3

REPORT INFORMATION
  Report Type: 
  Country: None (occurrence: None)
  Receive Date: 20050913
  Receipt Date: 20050902
  Transmission Date: 20060218
  Serious: Yes (Hospitalization)
  Sender: FDA-Public Use
  Company Number: JP-ABBOTT-05P-087-0310397-00

PATIENT
  Age: 75 Year
  Sex: Male
  Weight: 64.7 kg

DRUGS (7)
  1. CLARITH DRY SYRUP [Suspect]
     Indication: BRONCHITIS CHRONIC
     Route: 048
     Dates: start: 20041209, end: 20050121
  2. AMOXICILLIN AND CLAVULANATE POTASSIUM [Suspect]
     Indication: URINARY TRACT INFECTION
     Route: 048
     Dates: start: 20041209, end: 20041212
  3. PIPERACILLIN SODIUM [Suspect]
     Indication: ENTERITIS INFECTIOUS
     Route: 042
     Dates: start: 20050108, end: 20050614
  4. CILOSTAZOL [Concomitant]
     Indication: CEREBRAL INFARCTION
     Route: 048
     Dates: start: 20041208
  5. FUDOSTEINE [Concomitant]
     Indication: BRONCHITIS CHRONIC
     Route: 048
     Dates: start: 20041205
  6. QUETIAPINE FUMARATE [Concomitant]
     Indication: DELIRIUM
     Route: 048
     Dates: start: 20041209
  7. AZULENE SULFONATE SODIUM/L-GLUTAMINE [Concomitant]
     Indication: GASTRITIS
     Route: 048
     Dates: start: 20041228

REACTIONS (6)
  - ABNORMAL FAECES [None]
  - C-REACTIVE PROTEIN INCREASED [None]
  - ENTEROCOLITIS [None]
  - METHICILLIN-RESISTANT STAPHYLOCOCCAL AUREUS TEST POSITIVE [None]
  - PYREXIA [None]
  - WHITE BLOOD CELL COUNT INCREASED [None]
